FAERS Safety Report 10156684 (Version 1)
Quarter: 2014Q2

REPORT INFORMATION
  Report Type: Spontaneous
  Country: US (occurrence: None)
  Receive Date: 20140505
  Receipt Date: 20140505
  Transmission Date: 20141212
  Serious: Yes (Other)
  Sender: FDA-Public Use
  Company Number: SYM-2014-20195

PATIENT
  Age: 17 Year
  Sex: Male

DRUGS (5)
  1. XENAZINE [Suspect]
     Indication: MUSCLE SPASTICITY
     Dosage: 12.5 MG, 1 IN 1 D, ORAL
     Route: 048
     Dates: start: 20140419
  2. XENAZINE [Suspect]
     Indication: DYSTONIA
     Dosage: 12.5 MG, 1 IN 1 D, ORAL
     Route: 048
     Dates: start: 20140419
  3. TRILEPTAL (OXCARBAZEPINE) (300 MILLIGRAM/MILLILITERS, SUSPENSION) (OXCARBAZEPINE) [Concomitant]
  4. LISINOPRIL (LISINOPRIL) [Concomitant]
  5. CLONIDINE (CLONIDINE) [Concomitant]

REACTIONS (2)
  - Somnolence [None]
  - Convulsion [None]
